FAERS Safety Report 13395540 (Version 1)
Quarter: 2017Q2

REPORT INFORMATION
  Report Type: Spontaneous
  Country: US (occurrence: US)
  Receive Date: 20170403
  Receipt Date: 20170403
  Transmission Date: 20170830
  Serious: No
  Sender: FDA-Public Use
  Company Number: US-BAYER-2017-056276

PATIENT
  Age: 73 Year
  Sex: Female
  Weight: 58 kg

DRUGS (1)
  1. MIRALAX [Suspect]
     Active Substance: POLYETHYLENE GLYCOL 3350
     Dosage: UNK
     Route: 048
     Dates: start: 20170329

REACTIONS (3)
  - Product use issue [Unknown]
  - Circumstance or information capable of leading to medication error [Unknown]
  - Off label use [Unknown]

NARRATIVE: CASE EVENT DATE: 20170329
